FAERS Safety Report 7960985-3 (Version None)
Quarter: 2011Q4

REPORT INFORMATION
  Report Type: 
  Country: None (occurrence: None)
  Receive Date: 20111201
  Receipt Date: 20111201
  Transmission Date: 20120403
  Serious: Yes (Other)
  Sender: FDA-Public Use
  Company Number: None

PATIENT
  Sex: Male
  Weight: 25.855 kg

DRUGS (3)
  1. RESPERDONE (GENERIC) .25 TWICE A DAY [Suspect]
     Indication: ADJUSTMENT DISORDER
     Dosage: .25 TWICE A DAY ORAL
     Route: 048
     Dates: start: 20071120, end: 20080930
  2. RESPERDONE (GENERIC) .25 TWICE A DAY [Suspect]
     Indication: ATTENTION DEFICIT/HYPERACTIVITY DISORDER
     Dosage: .25 TWICE A DAY ORAL
     Route: 048
     Dates: start: 20071120, end: 20080930
  3. RESPERDONE (GENERIC) .25 TWICE A DAY [Suspect]
     Indication: REACTIVE ATTACHMENT DISORDER OF INFANCY OR EARLY CHILDHOOD
     Dosage: .25 TWICE A DAY ORAL
     Route: 048
     Dates: start: 20071120, end: 20080930

REACTIONS (2)
  - PRODUCT SUBSTITUTION ISSUE [None]
  - NO THERAPEUTIC RESPONSE [None]
